FAERS Safety Report 13758927 (Version 1)
Quarter: 2017Q3

REPORT INFORMATION
  Report Type: Spontaneous
  Country: BR (occurrence: BR)
  Receive Date: 20170717
  Receipt Date: 20170717
  Transmission Date: 20171127
  Serious: Yes (Hospitalization, Other)
  Sender: FDA-Public Use
  Company Number: BR-TORRENT-00004054

PATIENT
  Age: 10 Year
  Sex: Female
  Weight: 36 kg

DRUGS (3)
  1. RITALINA [Concomitant]
     Active Substance: METHYLPHENIDATE HYDROCHLORIDE
  2. RESPIDON [Suspect]
     Active Substance: RISPERIDONE
  3. DEPAKENE [Concomitant]
     Active Substance: VALPROIC ACID

REACTIONS (6)
  - Nasopharyngitis [Unknown]
  - Nausea [Unknown]
  - Varicella [Unknown]
  - Vomiting [Unknown]
  - Pneumonia [Unknown]
  - Oropharyngeal pain [Unknown]
